FAERS Safety Report 11344794 (Version 1)
Quarter: 2015Q3

REPORT INFORMATION
  Report Type: Spontaneous
  Country: US (occurrence: None)
  Receive Date: 20150805
  Receipt Date: 20150805
  Transmission Date: 20151125
  Serious: Yes (Death, Hospitalization)
  Sender: FDA-Public Use
  Company Number: None

PATIENT
  Age: 15 Year
  Sex: Female
  Weight: 73 kg

DRUGS (3)
  1. MORPHIN [Concomitant]
     Active Substance: MORPHINE
  2. QUADRAMET [Suspect]
     Active Substance: SAMARIUM SM-153 LEXIDRONAM PENTASODIUM
     Indication: OSTEOSARCOMA METASTATIC
     Route: 042
     Dates: start: 20150624, end: 20150624
  3. QUADRAMET [Suspect]
     Active Substance: SAMARIUM SM-153 LEXIDRONAM PENTASODIUM
     Indication: OSTEOSARCOMA METASTATIC
     Route: 042
     Dates: start: 20150701, end: 20150701

REACTIONS (4)
  - Surgical procedure repeated [None]
  - Pain in extremity [None]
  - Arthralgia [None]
  - Stem cell transplant [None]

NARRATIVE: CASE EVENT DATE: 20150803
